FAERS Safety Report 9529479 (Version 2)
Quarter: 2013Q3

REPORT INFORMATION
  Report Type: Spontaneous
  Country: FR (occurrence: FR)
  Receive Date: 20130917
  Receipt Date: 20130917
  Transmission Date: 20140515
  Serious: Yes (Other)
  Sender: FDA-Public Use
  Company Number: FR-PFIZER INC-2013153698

PATIENT
  Age: 6 Year
  Sex: Female
  Weight: 29 kg

DRUGS (10)
  1. ARACYTINE [Suspect]
     Indication: ACUTE LYMPHOCYTIC LEUKAEMIA
     Dosage: 25 MG, CYCLIC
     Route: 037
     Dates: start: 20121003, end: 20130211
  2. ARACYTINE [Suspect]
     Dosage: 31 MG, 1X/DAY
     Route: 058
     Dates: start: 20130211, end: 20130220
  3. METHOTREXATE MYLAN [Suspect]
     Indication: ACUTE LYMPHOCYTIC LEUKAEMIA
     Dosage: 12 MG, CYCLIC
     Route: 037
     Dates: start: 20121003, end: 20130211
  4. METHOTREXATE MYLAN [Suspect]
     Indication: ACUTE LYMPHOCYTIC LEUKAEMIA
     Dosage: 5110 MG, CYCLIC
     Route: 042
     Dates: start: 20121206, end: 20121207
  5. ETOPOPHOS [Suspect]
     Indication: ACUTE LYMPHOCYTIC LEUKAEMIA
     Dosage: 156 MG, CYCLIC
     Route: 042
     Dates: start: 20130211, end: 20130220
  6. LANVIS [Suspect]
     Indication: ACUTE LYMPHOCYTIC LEUKAEMIA
     Dosage: 60 MG, 1X/DAY
     Route: 048
     Dates: start: 20130212, end: 20130303
  7. DOXORUBICIN ACCORD [Suspect]
     Indication: ACUTE LYMPHOCYTIC LEUKAEMIA
     Dosage: 25 UG DAILY
     Route: 042
     Dates: start: 20130102, end: 20130104
  8. KIDROLASE [Suspect]
     Dosage: 6200 IU, CYCLIC
     Route: 030
     Dates: start: 20121003, end: 20130104
  9. ELDISINE [Suspect]
     Dosage: 3 MG, CYCLIC (ACCORDING TO THE CYCLE IV)
     Route: 042
     Dates: start: 20130102, end: 20130104
  10. HYDROCORTISONE ^UPJOHN^ [Concomitant]
     Indication: ACUTE LYMPHOCYTIC LEUKAEMIA
     Dosage: 12 MG, CYCLIC
     Route: 037
     Dates: start: 20121003, end: 20130211

REACTIONS (3)
  - Leukoencephalopathy [Recovered/Resolved with Sequelae]
  - Intracranial venous sinus thrombosis [Unknown]
  - Transverse sinus thrombosis [Unknown]
